FAERS Safety Report 10525133 (Version 1)
Quarter: 2014Q4

REPORT INFORMATION
  Report Type: Spontaneous
  Country: FR (occurrence: FR)
  Receive Date: 20141017
  Receipt Date: 20141017
  Transmission Date: 20150528
  Serious: Yes (Hospitalization)
  Sender: FDA-Public Use
  Company Number: FR-SA-2014SA140570

PATIENT
  Age: 66 Year
  Sex: Female

DRUGS (19)
  1. ARTANE [Suspect]
     Active Substance: TRIHEXYPHENIDYL HYDROCHLORIDE
     Route: 065
  2. GLIVEC [Suspect]
     Active Substance: IMATINIB MESYLATE
     Route: 048
     Dates: start: 201402, end: 20140829
  3. RIVOTRIL [Suspect]
     Active Substance: CLONAZEPAM
     Route: 048
     Dates: end: 20140905
  4. ARTANE [Suspect]
     Active Substance: TRIHEXYPHENIDYL HYDROCHLORIDE
     Route: 048
     Dates: end: 20140905
  5. DUPHALAC [Suspect]
     Active Substance: LACTULOSE
     Route: 048
     Dates: end: 20140905
  6. CONTRAMAL [Suspect]
     Active Substance: TRAMADOL HYDROCHLORIDE
     Route: 048
     Dates: end: 20140905
  7. NOOTROPYL [Suspect]
     Active Substance: PIRACETAM
     Route: 048
     Dates: end: 20140905
  8. INEXIUM [Suspect]
     Active Substance: ESOMEPRAZOLE
     Route: 065
  9. PARACETAMOL [Suspect]
     Active Substance: ACETAMINOPHEN
     Route: 048
     Dates: end: 20140905
  10. FUROSEMIDE. [Suspect]
     Active Substance: FUROSEMIDE
     Route: 065
  11. INEXIUM [Suspect]
     Active Substance: ESOMEPRAZOLE
     Route: 048
     Dates: end: 20140905
  12. PARACETAMOL [Suspect]
     Active Substance: ACETAMINOPHEN
     Route: 065
  13. FUROSEMIDE. [Suspect]
     Active Substance: FUROSEMIDE
     Route: 065
     Dates: end: 20140905
  14. CONTRAMAL [Suspect]
     Active Substance: TRAMADOL HYDROCHLORIDE
     Route: 065
  15. NOOTROPYL [Suspect]
     Active Substance: PIRACETAM
     Route: 065
  16. DUPHALAC [Suspect]
     Active Substance: LACTULOSE
     Route: 065
  17. RIVOTRIL [Suspect]
     Active Substance: CLONAZEPAM
     Route: 065
  18. LAROXYL [Concomitant]
     Active Substance: AMITRIPTYLINE
  19. TARDYFERON [Concomitant]
     Active Substance: FERROUS SULFATE\FOLIC ACID

REACTIONS (1)
  - Liver disorder [Not Recovered/Not Resolved]

NARRATIVE: CASE EVENT DATE: 20140828
